FAERS Safety Report 18244757 (Version 1)
Quarter: 2020Q3

REPORT INFORMATION
  Report Type: Spontaneous
  Country: US (occurrence: US)
  Receive Date: 20200908
  Receipt Date: 20200908
  Transmission Date: 20201103
  Serious: Yes (Hospitalization, Other)
  Sender: FDA-Public Use
  Company Number: US-PURDUE-USA-2020-0165030

PATIENT
  Sex: Male

DRUGS (6)
  1. FENTANYL CITRATE. [Suspect]
     Active Substance: FENTANYL CITRATE
     Indication: PAIN
     Route: 065
  2. HYDROCODONE BITARTRATE AND ACETAMINOPHEN [Suspect]
     Active Substance: ACETAMINOPHEN\HYDROCODONE BITARTRATE
     Indication: PAIN
     Route: 048
  3. DILAUDID [Suspect]
     Active Substance: HYDROMORPHONE HYDROCHLORIDE
     Indication: PAIN
     Route: 048
  4. OXYCODONE/ ACETAMINOPHEN TABLETS [Suspect]
     Active Substance: ACETAMINOPHEN\OXYCODONE HYDROCHLORIDE
     Indication: PAIN
     Route: 048
  5. OXYCONTIN [Suspect]
     Active Substance: OXYCODONE HYDROCHLORIDE
     Indication: PAIN
     Route: 048
  6. MS CONTIN [Suspect]
     Active Substance: MORPHINE SULFATE
     Indication: PAIN
     Route: 048

REACTIONS (13)
  - Disturbance in sexual arousal [Unknown]
  - Pain [Unknown]
  - Paradoxical pain [Unknown]
  - Drug dependence [Unknown]
  - Anxiety [Unknown]
  - Depressed level of consciousness [Unknown]
  - Quality of life decreased [Unknown]
  - Nausea [Unknown]
  - Dizziness [Unknown]
  - Vomiting [Unknown]
  - Memory impairment [Unknown]
  - Somnolence [Unknown]
  - Constipation [Unknown]
